FAERS Safety Report 8022902-X (Version None)
Quarter: 2012Q1

REPORT INFORMATION
  Report Type: 
  Country: None (occurrence: None)
  Receive Date: 20120104
  Receipt Date: 20111223
  Transmission Date: 20120608
  Serious: Yes (Other)
  Sender: FDA-Public Use
  Company Number: IT-ELI_LILLY_AND_COMPANY-IT201106004996

PATIENT
  Sex: Male

DRUGS (6)
  1. BEVACIZUMAB [Concomitant]
     Dosage: 540 MG, UNK
  2. BENEXOL [Concomitant]
  3. VITAMIN B-12 [Concomitant]
  4. ALIMTA [Suspect]
     Indication: LUNG ADENOCARCINOMA
     Dosage: 696.9 MG PER CYCLE
     Route: 042
     Dates: start: 20100922
  5. CISPLATIN [Concomitant]
     Dosage: 145.5 MG, UNKNOWN
  6. FOLIC ACID [Concomitant]
     Dosage: UNK, QD

REACTIONS (1)
  - HEPATOTOXICITY [None]
